FAERS Safety Report 9420656 (Version 1)
Quarter: 2013Q3

REPORT INFORMATION
  Report Type: Spontaneous
  Country: BE (occurrence: None)
  Receive Date: 20130723
  Receipt Date: 20130723
  Transmission Date: 20140515
  Serious: Yes (Other)
  Sender: FDA-Public Use
  Company Number: SYM-2013-06683

PATIENT
  Age: 41 Year
  Sex: Female

DRUGS (1)
  1. FLAGYL [Suspect]
     Indication: ROSACEA

REACTIONS (2)
  - Adrenal insufficiency [None]
  - Off label use [None]
